FAERS Safety Report 9430215 (Version 1)
Quarter: 2013Q3

REPORT INFORMATION
  Report Type: Spontaneous
  Country: US (occurrence: US)
  Receive Date: 20130730
  Receipt Date: 20130730
  Transmission Date: 20140515
  Serious: Yes (Hospitalization, Other)
  Sender: FDA-Public Use
  Company Number: US-BAXTER-2013BAX029335

PATIENT
  Age: 47 Year
  Sex: Female

DRUGS (5)
  1. DIANEAL LOW CALCIUM [Suspect]
     Indication: PERITONEAL DIALYSIS
     Route: 033
     Dates: start: 201210
  2. DIANEAL LOW CALCIUM [Suspect]
     Indication: PERITONEAL DIALYSIS
     Route: 033
     Dates: start: 201210
  3. LEVEMIR [Suspect]
     Indication: DIABETES MELLITUS
     Route: 065
  4. NOVOLOG [Suspect]
     Indication: DIABETES MELLITUS
     Route: 065
  5. NOVOLOG [Suspect]
     Route: 065

REACTIONS (4)
  - Incorrect dose administered [Unknown]
  - Blood glucose decreased [Recovered/Resolved]
  - Disease recurrence [Unknown]
  - Blood insulin decreased [Unknown]
